FAERS Safety Report 25866404 (Version 1)
Quarter: 2025Q3

REPORT INFORMATION
  Report Type: Spontaneous
  Country: EU (occurrence: EU)
  Receive Date: 20250930
  Receipt Date: 20250930
  Transmission Date: 20251020
  Serious: Yes (Other)
  Sender: VERITY PHARMACEUTICALS INC.
  Company Number: EU-VER-202500002

PATIENT
  Age: 79 Year
  Sex: Male

DRUGS (1)
  1. TRIPTORELIN PAMOATE [Suspect]
     Active Substance: TRIPTORELIN PAMOATE
     Indication: Antiandrogen therapy
     Dosage: POWDER AND SOLVENT FOR PROLONGED-RELEASE?SUSPENSION FOR INJECTION
     Route: 065
     Dates: start: 2021, end: 2023

REACTIONS (3)
  - Visual impairment [Unknown]
  - Optic ischaemic neuropathy [Unknown]
  - Eye disorder [Unknown]

NARRATIVE: CASE EVENT DATE: 20221101
